FAERS Safety Report 7908799-4 (Version None)
Quarter: 2011Q4

REPORT INFORMATION
  Report Type: 
  Country: None (occurrence: None)
  Receive Date: 20111111
  Receipt Date: 20111028
  Transmission Date: 20120403
  Serious: Yes (Other)
  Sender: FDA-Public Use
  Company Number: IT-COVIDIEN/TYCO HEALTHCARE/MALLINCKRODT-T201102497

PATIENT
  Age: 68 Year
  Sex: Male

DRUGS (7)
  1. MORPHINE [Concomitant]
     Dosage: 400 MG TWO TIMES A DAY
  2. ACETAMINOPHEN [Concomitant]
     Dosage: 1000 MG THREE TIMES A DAY
  3. EXALGO [Suspect]
     Indication: PAIN
     Dosage: 256 MG, QD
  4. MORPHINE [Concomitant]
     Dosage: 20 MG
  5. PREGABALIN [Suspect]
     Indication: PAIN
     Dosage: 75 MG TWICE A DAY
  6. EXALGO [Suspect]
     Dosage: 160 MG, QD
  7. FENTANYL CITRATE [Suspect]
     Indication: PAIN
     Dosage: UNK

REACTIONS (7)
  - PAIN [None]
  - HALLUCINATION, AUDITORY [None]
  - SOMNOLENCE [None]
  - MUSCLE CONTRACTIONS INVOLUNTARY [None]
  - HALLUCINATION, VISUAL [None]
  - CONSTIPATION [None]
  - CONDITION AGGRAVATED [None]
